FAERS Safety Report 24880624 (Version 1)
Quarter: 2025Q1

REPORT INFORMATION
  Report Type: Spontaneous
  Country: GB (occurrence: GB)
  Receive Date: 20250123
  Receipt Date: 20250123
  Transmission Date: 20250408
  Serious: Yes (Hospitalization, Other)
  Sender: CELLTRION
  Company Number: GB-CELLTRION INC.-2025GB001769

PATIENT

DRUGS (1)
  1. YUFLYMA [Suspect]
     Active Substance: ADALIMUMAB-AATY
     Indication: Psoriatic arthropathy
     Dates: start: 202406

REACTIONS (3)
  - Surgery [Unknown]
  - Gallbladder rupture [Unknown]
  - Sepsis [Unknown]

NARRATIVE: CASE EVENT DATE: 20240816
